FAERS Safety Report 9495731 (Version 1)
Quarter: 2013Q3

REPORT INFORMATION
  Report Type: Spontaneous
  Country: CH (occurrence: CH)
  Receive Date: 20130903
  Receipt Date: 20130903
  Transmission Date: 20140515
  Serious: Yes (Hospitalization)
  Sender: FDA-Public Use
  Company Number: CH-ASTRAZENECA-2013SE65939

PATIENT
  Age: 80 Year
  Sex: Male

DRUGS (4)
  1. ANTRA [Suspect]
     Indication: GASTROOESOPHAGEAL REFLUX DISEASE
     Route: 048
  2. ASPIRIN [Concomitant]
  3. BISOPROLOL [Concomitant]
  4. SIMVASTATIN [Concomitant]

REACTIONS (5)
  - Hypokalaemia [Recovered/Resolved]
  - Hypoparathyroidism secondary [Recovered/Resolved]
  - Hypocalcaemia [Recovered/Resolved]
  - Epilepsy [Recovered/Resolved]
  - Hypomagnesaemia [Recovered/Resolved]
